FAERS Safety Report 15284978 (Version 2)
Quarter: 2018Q3

REPORT INFORMATION
  Report Type: Report from Study
  Country: US (occurrence: US)
  Receive Date: 20180816
  Receipt Date: 20180821
  Transmission Date: 20181010
  Serious: Yes (Other)
  Sender: FDA-Public Use
  Company Number: US-GILEAD-2018-0356219

PATIENT
  Age: 38 Year
  Sex: Male

DRUGS (2)
  1. AMBRISENTAN [Suspect]
     Active Substance: AMBRISENTAN
     Dosage: 5 MG, BID
     Route: 065
  2. AMBRISENTAN [Suspect]
     Active Substance: AMBRISENTAN
     Indication: PRODUCT USED FOR UNKNOWN INDICATION
     Dosage: 5 MG, QD
     Route: 065
     Dates: start: 20160914

REACTIONS (8)
  - Musculoskeletal pain [Unknown]
  - Nausea [Unknown]
  - Clostridium difficile infection [Not Recovered/Not Resolved]
  - Neck pain [Unknown]
  - Pain in extremity [Unknown]
  - Off label use [Recovered/Resolved]
  - Arthralgia [Not Recovered/Not Resolved]
  - Device related infection [Unknown]
